FAERS Safety Report 16668878 (Version 1)
Quarter: 2019Q3

REPORT INFORMATION
  Report Type: Spontaneous
  Country: US (occurrence: US)
  Receive Date: 20190620
  Receipt Date: 20190620
  Transmission Date: 20191004
  Serious: No
  Sender: FDA-Public Use
  Company Number: None

PATIENT
  Age: 28 Year
  Sex: Male

DRUGS (1)
  1. HUMIRA [Suspect]
     Active Substance: ADALIMUMAB
     Indication: CROHN^S DISEASE
     Route: 058
     Dates: start: 20180210

REACTIONS (4)
  - Exfoliative rash [None]
  - Rash erythematous [None]
  - Acne [None]
  - Drug ineffective [None]

NARRATIVE: CASE EVENT DATE: 201904
